FAERS Safety Report 25131644 (Version 1)
Quarter: 2025Q1

REPORT INFORMATION
  Report Type: Spontaneous
  Country: DE (occurrence: DE)
  Receive Date: 20250327
  Receipt Date: 20250327
  Transmission Date: 20250408
  Serious: Yes (Congenital Anomaly, Other)
  Sender: TEVA
  Company Number: DE-EMB-M202303757-1

PATIENT
  Sex: Female
  Weight: 1.1 kg

DRUGS (6)
  1. NEBIVOLOL [Suspect]
     Active Substance: NEBIVOLOL
     Indication: Atrial septal defect
     Dosage: 5 MG - 0 - 5 MG
     Route: 064
     Dates: start: 202303, end: 202311
  2. GANIRELIX [Concomitant]
     Active Substance: GANIRELIX
     Indication: Assisted fertilisation
     Route: 064
     Dates: start: 202303, end: 202304
  3. ATOSIBAN [Concomitant]
     Active Substance: ATOSIBAN
     Indication: Cervical incompetence
     Route: 064
     Dates: start: 202310, end: 202311
  4. BUDESONIDE [Concomitant]
     Active Substance: BUDESONIDE
     Indication: Asthma
     Route: 064
     Dates: start: 202303, end: 202311
  5. FOLLITROPIN ALFA [Concomitant]
     Active Substance: FOLLITROPIN ALFA
     Indication: Assisted fertilisation
     Dosage: 225 I.E
     Route: 064
     Dates: start: 202303, end: 202304
  6. CHORIOGONADOTROPIN ALFA [Concomitant]
     Active Substance: CHORIOGONADOTROPIN ALFA
     Indication: Assisted fertilisation
     Route: 064
     Dates: start: 202304, end: 202304

REACTIONS (3)
  - Fallot^s tetralogy [Not Recovered/Not Resolved]
  - Foetal exposure during pregnancy [Unknown]
  - Small for dates baby [Unknown]

NARRATIVE: CASE EVENT DATE: 20231101
